FAERS Safety Report 5479784-X (Version None)
Quarter: 2007Q4

REPORT INFORMATION
  Report Type: 
  Country: None (occurrence: None)
  Receive Date: 20071008
  Receipt Date: 20071003
  Transmission Date: 20080405
  Serious: Yes (Hospitalization)
  Sender: FDA-Public Use
  Company Number: US-ASTRAZENECA-2007UW23068

PATIENT
  Age: 72 Year
  Sex: Male
  Weight: 51.4 kg

DRUGS (10)
  1. ATACAND [Suspect]
     Indication: HYPERTENSION
     Route: 048
  2. ATACAND HCT [Suspect]
     Route: 048
     Dates: end: 20070901
  3. CADUET [Suspect]
     Indication: HYPERTENSION
     Route: 048
  4. ANGIOGUARD RX SHORT TIP [Suspect]
  5. PRILOSEC [Concomitant]
     Route: 048
  6. IMDUR [Concomitant]
     Route: 048
  7. ASPIRIN [Concomitant]
     Route: 048
  8. PLAVIX [Concomitant]
     Route: 048
  9. LISINOPRIL [Concomitant]
     Route: 048
  10. FLOMAX [Concomitant]
     Route: 048

REACTIONS (2)
  - SHOCK [None]
  - SYNCOPE [None]
